FAERS Safety Report 6906362-5 (Version None)
Quarter: 2010Q3

REPORT INFORMATION
  Report Type: 
  Country: None (occurrence: None)
  Receive Date: 20100804
  Receipt Date: 20100727
  Transmission Date: 20110219
  Serious: Yes (Hospitalization)
  Sender: FDA-Public Use
  Company Number: A0867092A

PATIENT
  Age: 75 Year
  Sex: Male
  Weight: 95 kg

DRUGS (6)
  1. AVANDIA [Suspect]
     Dosage: 8MG PER DAY
     Route: 048
     Dates: start: 20040701, end: 20080623
  2. NOVOLOG [Concomitant]
  3. HUMULIN N [Concomitant]
  4. GLIPIZIDE [Concomitant]
  5. ZEGERID [Concomitant]
  6. LISINOPRIL [Concomitant]

REACTIONS (4)
  - ATRIAL FIBRILLATION [None]
  - CARDIAC FAILURE CONGESTIVE [None]
  - MYOCARDIAL INFARCTION [None]
  - TRANSIENT ISCHAEMIC ATTACK [None]
